FAERS Safety Report 11944759 (Version 1)
Quarter: 2016Q1

REPORT INFORMATION
  Report Type: Report from Study
  Country: JP (occurrence: JP)
  Receive Date: 20160125
  Receipt Date: 20160125
  Transmission Date: 20160526
  Serious: Yes (Other)
  Sender: FDA-Public Use
  Company Number: JP-WARNER CHILCOTT, LLC-1046856

PATIENT
  Age: 63 Year
  Sex: Female

DRUGS (8)
  1. VITAMIN D AND ANALOGUES [Concomitant]
     Active Substance: CHOLECALCIFEROL
     Dates: start: 20130928
  2. MUCOSTA [Concomitant]
     Active Substance: REBAMIPIDE
  3. LOXONIN [Concomitant]
     Active Substance: LOXOPROFEN SODIUM
  4. ASPARA-CA [Concomitant]
     Active Substance: CALCIUM ASPARTATE
     Dates: start: 20130928
  5. TRAMADOL HYDROCHLORIDE AND ACETAMINOPHEN [Concomitant]
     Active Substance: ACETAMINOPHEN\TRAMADOL HYDROCHLORIDE
  6. ACTONEL [Suspect]
     Active Substance: RISEDRONATE SODIUM
     Indication: OSTEOPOROSIS
     Route: 048
     Dates: start: 20130928, end: 20140613
  7. ADALAT [Concomitant]
     Active Substance: NIFEDIPINE
  8. OPALMON [Concomitant]
     Active Substance: LIMAPROST

REACTIONS (3)
  - Cardiac hypertrophy [Unknown]
  - Hypertension [Unknown]
  - Aortic stenosis [Unknown]
